FAERS Safety Report 9000717 (Version 2)
Quarter: 2013Q1

REPORT INFORMATION
  Report Type: Spontaneous
  Country: US (occurrence: US)
  Receive Date: 20130107
  Receipt Date: 20130308
  Transmission Date: 20140127
  Serious: Yes (Hospitalization)
  Sender: FDA-Public Use
  Company Number: US-ELI_LILLY_AND_COMPANY-US201204010117

PATIENT
  Age: 76 Year
  Sex: Female
  Weight: 72.56 kg

DRUGS (17)
  1. FORTEO [Suspect]
     Indication: OSTEOPOROSIS
     Dosage: 20 UG, QD
     Route: 058
     Dates: start: 201204, end: 20120426
  2. FORTEO [Suspect]
     Dosage: 20 UG, QD
     Route: 058
     Dates: start: 20121227
  3. FUROSEMIDE [Concomitant]
     Dosage: 40 MG, QD
  4. GABAPENTIN [Concomitant]
     Dosage: 300 MG, TID
  5. PRAVASTATIN [Concomitant]
     Dosage: 40 MG, UNK
  6. NORVASC [Concomitant]
     Dosage: 10 MG, UNK
  7. ATENOLOL [Concomitant]
     Dosage: 100 MG, EACH EVENING
  8. POTASSIUM CHLORIDE [Concomitant]
     Dosage: 20 MEQ, UNK
  9. RANITIDINE [Concomitant]
     Dosage: 150 MG, BID
  10. WARFARIN [Concomitant]
     Dosage: 2 MG, 2/W
  11. WARFARIN [Concomitant]
     Dosage: 4 MG, 5/W
  12. CLONAZEPAM [Concomitant]
     Dosage: 0.25 MG, PRN
  13. TRAMADOL [Concomitant]
     Dosage: UNK
  14. COLACE [Concomitant]
     Dosage: 100 MG, UNK
  15. CALTRATE [Concomitant]
     Dosage: UNK, QD
  16. TYLENOL PM [Concomitant]
     Dosage: UNK, PRN
  17. TYLENOL EXTRA STRENGTH [Concomitant]
     Dosage: UNK, PRN

REACTIONS (9)
  - Pyrexia [Recovered/Resolved]
  - Nasopharyngitis [Recovered/Resolved]
  - Fear [Unknown]
  - Headache [Recovered/Resolved]
  - Muscle spasms [Recovered/Resolved]
  - Intentional drug misuse [Not Recovered/Not Resolved]
  - Compression fracture [Unknown]
  - Ear disorder [Unknown]
  - Muscle spasms [Unknown]
